FAERS Safety Report 24575710 (Version 1)
Quarter: 2024Q4

REPORT INFORMATION
  Report Type: Spontaneous
  Country: US (occurrence: None)
  Receive Date: 20241101
  Receipt Date: 20241101
  Transmission Date: 20250114
  Serious: No
  Sender: Public
  Company Number: None

PATIENT
  Age: 18 Year
  Sex: Female

DRUGS (2)
  1. OXBRYTA [Suspect]
     Active Substance: VOXELOTOR
     Route: 048
     Dates: start: 202302
  2. SIKLOS [Concomitant]
     Active Substance: HYDROXYUREA

REACTIONS (1)
  - Sickle cell anaemia with crisis [None]

NARRATIVE: CASE EVENT DATE: 20241025
